FAERS Safety Report 26021077 (Version 1)
Quarter: 2025Q4

REPORT INFORMATION
  Report Type: Spontaneous
  Country: US (occurrence: None)
  Receive Date: 20251107
  Receipt Date: 20251107
  Transmission Date: 20260117
  Serious: Yes (Death)
  Sender: FDA-CTU
  Company Number: None

PATIENT
  Age: 73 Year
  Sex: Male

DRUGS (3)
  1. NIVESTYM [Suspect]
     Active Substance: FILGRASTIM-AAFI
     Indication: Acute myeloid leukaemia
     Dosage: 480 UG/M2 MICROGRAM(S) /SQ.METER DAILY SUBCUTANEOUS
     Route: 058
     Dates: start: 20250918
  2. SORAFENIB [Concomitant]
     Active Substance: SORAFENIB
  3. XOSPATA [Suspect]
     Active Substance: GILTERITINIB

REACTIONS (1)
  - Leukaemia [None]

NARRATIVE: CASE EVENT DATE: 20251031
